FAERS Safety Report 8170990-2 (Version None)
Quarter: 2012Q1

REPORT INFORMATION
  Report Type: 
  Country: None (occurrence: None)
  Receive Date: 20120228
  Receipt Date: 20120221
  Transmission Date: 20120608
  Serious: Yes (Other)
  Sender: FDA-Public Use
  Company Number: CA-UCBSA-052064

PATIENT
  Age: 46 Year
  Sex: Female
  Weight: 73 kg

DRUGS (4)
  1. PANTALOC [Concomitant]
     Indication: GASTRIC ULCER
     Route: 048
  2. PERCOCETTE [Concomitant]
     Indication: ANALGESIC THERAPY
     Dosage: 2-4 TABS DAILY AS NEEDED
  3. CIMZIA [Suspect]
     Indication: RHEUMATOID ARTHRITIS
     Route: 058
     Dates: start: 20120216
  4. CLONAZEPAM [Concomitant]
     Indication: ANXIOLYTIC THERAPY
     Dosage: EVERY BED TIME
     Route: 048

REACTIONS (6)
  - PALPITATIONS [None]
  - LOCAL SWELLING [None]
  - VOMITING [None]
  - HEADACHE [None]
  - CHEST PAIN [None]
  - SWELLING FACE [None]
